FAERS Safety Report 13382324 (Version 1)
Quarter: 2017Q1

REPORT INFORMATION
  Report Type: Spontaneous
  Country: US (occurrence: US)
  Receive Date: 20170329
  Receipt Date: 20170329
  Transmission Date: 20170429
  Serious: No
  Sender: FDA-Public Use
  Company Number: US-GLAXOSMITHKLINE-US2017044171

PATIENT
  Sex: Female

DRUGS (1)
  1. ABREVA [Suspect]
     Active Substance: DOCOSANOL
     Indication: ORAL HERPES
     Dosage: UNK
     Dates: start: 20170306, end: 20170315

REACTIONS (3)
  - Oral herpes [Recovered/Resolved]
  - Condition aggravated [Recovered/Resolved]
  - Expired product administered [Unknown]

NARRATIVE: CASE EVENT DATE: 20170307
